FAERS Safety Report 6240091-9 (Version None)
Quarter: 2009Q2

REPORT INFORMATION
  Report Type: 
  Country: None (occurrence: None)
  Receive Date: 20090618
  Receipt Date: 20090618
  Transmission Date: 20091009
  Serious: No
  Sender: FDA-Public Use
  Company Number: None

PATIENT
  Sex: Female
  Weight: 81.6475 kg

DRUGS (1)
  1. ZICAM [Suspect]
     Indication: SINUS DISORDER
     Dosage: 1 BOTTLE NASAL
     Route: 045
     Dates: start: 20080301, end: 20080430

REACTIONS (1)
  - ANOSMIA [None]
